FAERS Safety Report 5678091-X (Version None)
Quarter: 2008Q1

REPORT INFORMATION
  Report Type: 
  Country: None (occurrence: None)
  Receive Date: 20080319
  Receipt Date: 20080307
  Transmission Date: 20080703
  Serious: Yes (Life-Threatening, Hospitalization)
  Sender: FDA-Public Use
  Company Number: FABR-1000116

PATIENT
  Age: 51 Year
  Sex: Male
  Weight: 69 kg

DRUGS (4)
  1. FABRAZYME [Suspect]
     Indication: FABRY'S DISEASE
     Dosage: 1.03 MG/KG, Q2W, INTRAVENOUS
     Route: 042
     Dates: start: 20071001
  2. CALCIUM [Concomitant]
  3. FOLIC ACID [Concomitant]
  4. ACETYLSALICYLIC ACID SRT [Concomitant]

REACTIONS (4)
  - FEELING HOT [None]
  - PARAESTHESIA [None]
  - PRURITUS [None]
  - TRANSIENT ISCHAEMIC ATTACK [None]
